FAERS Safety Report 15171396 (Version 1)
Quarter: 2018Q3

REPORT INFORMATION
  Report Type: Spontaneous
  Country: US (occurrence: US)
  Receive Date: 20180720
  Receipt Date: 20180720
  Transmission Date: 20181010
  Serious: No
  Sender: FDA-Public Use
  Company Number: US-ARBOR PHARMACEUTICALS, LLC-US-2018ARB000762

PATIENT
  Age: 9 Year
  Sex: Female

DRUGS (1)
  1. TRIPTODUR [Suspect]
     Active Substance: TRIPTORELIN
     Indication: PRODUCT USED FOR UNKNOWN INDICATION
     Dosage: UNK
     Route: 030

REACTIONS (3)
  - Product use complaint [Unknown]
  - Drug dose omission [Unknown]
  - Product physical issue [Unknown]

NARRATIVE: CASE EVENT DATE: 20180614
